FAERS Safety Report 9216735 (Version 1)
Quarter: 2013Q2

REPORT INFORMATION
  Report Type: Spontaneous
  Country: US (occurrence: US)
  Receive Date: 20130405
  Receipt Date: 20130405
  Transmission Date: 20140414
  Serious: Yes (Other)
  Sender: FDA-Public Use
  Company Number: US-RB-052352-13

PATIENT
  Age: 7 Year
  Sex: Male

DRUGS (1)
  1. DELSYM CHILDRENS NIGHT TIME COUGH AND COLD [Suspect]
     Indication: PRODUCT USED FOR UNKNOWN INDICATION
     Dosage: STARTED ON ??/MAR/2013
     Route: 048

REACTIONS (2)
  - Depression [Recovered/Resolved]
  - Irritability [Recovered/Resolved]
